FAERS Safety Report 4932738-1 (Version None)
Quarter: 2006Q1

REPORT INFORMATION
  Report Type: 
  Country: None (occurrence: None)
  Receive Date: 20060301
  Receipt Date: 20060301
  Transmission Date: 20060701
  Serious: Yes (Hospitalization)
  Sender: FDA-Public Use
  Company Number: None

PATIENT
  Sex: Female

DRUGS (6)
  1. WARFARIN 5MG [Suspect]
     Indication: TRICUSPID VALVE REPLACEMENT
     Dosage: 5MG  SAT-THUR  PO
     Route: 048
  2. WARFARIN   6MG [Suspect]
     Indication: MITRAL VALVE REPLACEMENT
     Dosage: 6MG   FRI   PO
     Route: 048
  3. METOPROLOL [Concomitant]
  4. DIGOXIN [Concomitant]
  5. COUMADIN [Concomitant]
  6. LANSOPRAZOLE [Concomitant]

REACTIONS (2)
  - HYPERCOAGULATION [None]
  - INTERNATIONAL NORMALISED RATIO INCREASED [None]
